FAERS Safety Report 8151969-3 (Version None)
Quarter: 2012Q1

REPORT INFORMATION
  Report Type: 
  Country: None (occurrence: None)
  Receive Date: 20120214
  Receipt Date: 20120131
  Transmission Date: 20120608
  Serious: Yes (Other)
  Sender: FDA-Public Use
  Company Number: FK201200286

PATIENT
  Age: 61 Year
  Sex: Female

DRUGS (2)
  1. LIDOCAINE [Concomitant]
  2. DEXAMETHASONE [Suspect]
     Indication: ANALGESIC THERAPY
     Dosage: 3 MG, INTRAVENOUS BOLUS
     Route: 040

REACTIONS (6)
  - PARAESTHESIA [None]
  - ERYTHEMA [None]
  - OEDEMA PERIPHERAL [None]
  - JOINT SWELLING [None]
  - PAIN IN EXTREMITY [None]
  - ARTHRALGIA [None]
